FAERS Safety Report 4997422-7 (Version None)
Quarter: 2006Q2

REPORT INFORMATION
  Report Type: 
  Country: None (occurrence: None)
  Receive Date: 20060509
  Receipt Date: 20050726
  Transmission Date: 20061013
  Serious: Yes (Death, Hospitalization, Other)
  Sender: FDA-Public Use
  Company Number: US-MERCK-0507USA04218

PATIENT
  Age: 78 Year
  Sex: Male
  Weight: 107 kg

DRUGS (10)
  1. VIOXX [Suspect]
     Indication: ARTHRITIS
     Route: 048
     Dates: start: 20020101
  2. CAPTOPRIL [Concomitant]
     Route: 065
  3. TIAZAC [Concomitant]
     Route: 065
  4. CELEBREX [Concomitant]
     Route: 065
  5. LOPID [Concomitant]
     Route: 065
  6. SYNTHROID [Concomitant]
     Route: 065
  7. TERAZOSIN HYDROCHLORIDE [Concomitant]
     Route: 065
  8. NADOLOL [Concomitant]
     Route: 065
  9. INSULIN [Concomitant]
     Route: 065
  10. LASIX [Concomitant]
     Route: 065

REACTIONS (14)
  - ANAEMIA [None]
  - CARDIAC FAILURE [None]
  - CAROTID BRUIT [None]
  - DIABETES MELLITUS [None]
  - DIZZINESS [None]
  - HYPERTENSIVE HEART DISEASE [None]
  - LOSS OF CONSCIOUSNESS [None]
  - MYOCARDIAL INFARCTION [None]
  - NEUROPATHY PERIPHERAL [None]
  - ORTHOSTATIC HYPOTENSION [None]
  - RENAL FAILURE [None]
  - SINUS BRADYCARDIA [None]
  - SYNCOPE [None]
  - VENTRICULAR EXTRASYSTOLES [None]
